FAERS Safety Report 24398053 (Version 3)
Quarter: 2025Q3

REPORT INFORMATION
  Report Type: Spontaneous
  Country: US (occurrence: US)
  Receive Date: 20241004
  Receipt Date: 20250803
  Transmission Date: 20251021
  Serious: Yes (Death, Other)
  Sender: ALEXION PHARMACEUTICALS
  Company Number: US-AstraZeneca-CH-00709949A

PATIENT
  Age: 70 Year
  Sex: Male

DRUGS (2)
  1. IMJUDO [Suspect]
     Active Substance: TREMELIMUMAB\TREMELIMUMAB-ACTL
     Indication: Hepatocellular carcinoma
     Dates: start: 20240517, end: 20240517
  2. IMFINZI [Suspect]
     Active Substance: DURVALUMAB
     Indication: Hepatocellular carcinoma
     Dates: start: 20240517, end: 20240715

REACTIONS (4)
  - Hypotension [Fatal]
  - Leukocytosis [Not Recovered/Not Resolved]
  - Acute kidney injury [Unknown]
  - Pyrexia [Fatal]

NARRATIVE: CASE EVENT DATE: 20240808
